FAERS Safety Report 8136133-6 (Version None)
Quarter: 2012Q1

REPORT INFORMATION
  Report Type: 
  Country: None (occurrence: None)
  Receive Date: 20120214
  Receipt Date: 20120131
  Transmission Date: 20120608
  Serious: No
  Sender: FDA-Public Use
  Company Number: US-COVIDIEN/TYCO HEALTHCARE/MALLINCKRODT-T201200541

PATIENT
  Sex: Male

DRUGS (4)
  1. DILAUDID [Concomitant]
     Indication: PAIN
     Dosage: UNK, SINGLE
     Dates: start: 20120101, end: 20120101
  2. FENTANYL-100 [Suspect]
     Indication: PAIN
     Dosage: 25 UG/HR, 1 FTS Q 3 DAYS
     Route: 062
     Dates: start: 20120127
  3. VALIUM [Concomitant]
     Indication: MUSCLE RELAXANT THERAPY
     Dosage: 5 MG, UNK
  4. LORTAB [Concomitant]
     Indication: PAIN
     Dosage: 7.5/750, TID
     Route: 048

REACTIONS (1)
  - ERYTHEMA [None]
